FAERS Safety Report 12893337 (Version 5)
Quarter: 2018Q1

REPORT INFORMATION
  Report Type: Spontaneous
  Country: US (occurrence: US)
  Receive Date: 20161028
  Receipt Date: 20180112
  Transmission Date: 20180508
  Serious: Yes (Disabling, Other)
  Sender: FDA-Public Use
  Company Number: US-009507513-1610USA011587

PATIENT
  Age: 48 Year
  Sex: Male

DRUGS (2)
  1. BETAMETHASONE SODIUM PHOSPHATE [Suspect]
     Active Substance: BETAMETHASONE SODIUM PHOSPHATE
     Indication: PAIN MANAGEMENT
     Dosage: 12 MG (2ML), ONCE
     Route: 008
  2. BUPIVACAINE. [Concomitant]
     Active Substance: BUPIVACAINE
     Indication: PAIN MANAGEMENT
     Dosage: 4 ML, ONCE
     Route: 008

REACTIONS (4)
  - Sensory loss [Recovering/Resolving]
  - Off label use [Unknown]
  - Urinary retention [Recovering/Resolving]
  - Paraparesis [Recovering/Resolving]
